FAERS Safety Report 8534603-X (Version None)
Quarter: 2012Q3

REPORT INFORMATION
  Report Type: 
  Country: None (occurrence: None)
  Receive Date: 20120724
  Receipt Date: 20120723
  Transmission Date: 20120928
  Serious: Yes (Hospitalization)
  Sender: FDA-Public Use
  Company Number: PHHO2012KR009964

PATIENT
  Sex: Male
  Weight: 81 kg

DRUGS (18)
  1. ALLOPURINOL [Suspect]
     Indication: RENAL FAILURE CHRONIC
     Dosage: 100 MG, QD
     Route: 048
     Dates: start: 20110105
  2. ROPINIROLE [Concomitant]
     Indication: MUSCLE SPASMS
     Dosage: 0.25 MG, QD
     Route: 048
     Dates: start: 20110411, end: 20120625
  3. EFONIDIPINE HYDROCHLORIDE [Concomitant]
     Indication: HYPERTENSION
     Dosage: 10 MG, QD
     Route: 048
     Dates: start: 20120214
  4. AMARYL [Suspect]
     Indication: TYPE 2 DIABETES MELLITUS
     Dosage: 2 MG, QD
     Route: 048
     Dates: start: 20110302
  5. PLACEBO [Suspect]
     Indication: CARDIOVASCULAR DISORDER
     Dosage: CODE NOT BROKEN
     Route: 048
     Dates: start: 20090601, end: 20111226
  6. SULODEXIDE [Concomitant]
     Dosage: 250LSU, BID
     Route: 048
     Dates: start: 20120502
  7. CHOLINE ALFOSCERATE [Concomitant]
     Indication: PROPHYLAXIS
     Dosage: 400 MG, BID
     Route: 048
     Dates: start: 20080325, end: 20120625
  8. FINASTERIDE [Concomitant]
     Indication: BENIGN PROSTATIC HYPERPLASIA
     Dosage: 5 MG, QD
     Route: 048
     Dates: start: 20111122, end: 20120625
  9. CILOSTAZOL [Concomitant]
     Dosage: 100 MG, BID
     Route: 048
     Dates: start: 20030709, end: 20120620
  10. PREGABALIN [Concomitant]
     Indication: MUSCLE SPASMS
     Dosage: 75 MG, BID
     Route: 048
     Dates: start: 20120502
  11. BLINDED ALISKIREN [Suspect]
     Indication: CARDIOVASCULAR DISORDER
     Dosage: CODE NOT BROKEN
     Route: 048
     Dates: start: 20090601, end: 20111226
  12. BLINDED NO TREATMENT RECEIVED [Suspect]
     Indication: CARDIOVASCULAR DISORDER
     Dosage: CODE NOT BROKEN
     Route: 048
     Dates: start: 20090601, end: 20111226
  13. METFORMIN HYDROCHLORIDE [Suspect]
     Indication: TYPE 2 DIABETES MELLITUS
     Dosage: 500 MG, QD
     Route: 048
     Dates: start: 20030107
  14. INSULIN DETEMIR [Concomitant]
     Indication: TYPE 2 DIABETES MELLITUS
     Dosage: 10 IU, QD
     Route: 058
     Dates: start: 20111207
  15. ATORVASTATIN CALCIUM [Suspect]
     Indication: HYPERLIPIDAEMIA
     Dosage: 10 MG, QD
     Route: 048
     Dates: start: 20100604
  16. SILODOSIN [Suspect]
     Indication: BENIGN PROSTATIC HYPERPLASIA
     Dosage: 4 MG, BID
     Route: 048
     Dates: start: 20110617, end: 20120625
  17. PERINDOPRIL ERBUMINE [Concomitant]
     Indication: HYPERTENSION
     Dosage: 4 MG, QD
     Route: 048
     Dates: start: 20110504
  18. ASPIRIN [Concomitant]
     Indication: HYPERTENSION
     Dosage: 100 MG, QD
     Route: 048
     Dates: start: 20030107, end: 20120620

REACTIONS (1)
  - FUNCTIONAL GASTROINTESTINAL DISORDER [None]
